FAERS Safety Report 8345818-8 (Version None)
Quarter: 2012Q2

REPORT INFORMATION
  Report Type: 
  Country: None (occurrence: None)
  Receive Date: 20120509
  Receipt Date: 20120425
  Transmission Date: 20120825
  Serious: Yes (Hospitalization, Other)
  Sender: FDA-Public Use
  Company Number: JP-AMGEN-JPNSP2012027309

PATIENT
  Age: 59 Year
  Sex: Female

DRUGS (3)
  1. METHOTREXATE SODIUM [Suspect]
     Dosage: 6 MG, WEEKLY
  2. ENBREL [Suspect]
     Indication: RHEUMATOID ARTHRITIS
     Dosage: UNK, 2X/WEEK
     Route: 058
  3. PREDNISOLONE [Suspect]
     Dosage: 10 MG DAILY

REACTIONS (8)
  - SKIN ULCER [None]
  - FALL [None]
  - CONTUSION [None]
  - PSEUDOMONAS INFECTION [None]
  - OEDEMA PERIPHERAL [None]
  - NECROSIS [None]
  - HAEMATOMA [None]
  - PURULENCE [None]
